FAERS Safety Report 6988741-3 (Version None)
Quarter: 2010Q3

REPORT INFORMATION
  Report Type: 
  Country: None (occurrence: None)
  Receive Date: 20100916
  Receipt Date: 20100913
  Transmission Date: 20110219
  Serious: Yes (Life-Threatening)
  Sender: FDA-Public Use
  Company Number: JP-ASTRAZENECA-2010SE43008

PATIENT
  Age: 71 Year
  Sex: Female

DRUGS (3)
  1. TENORMIN [Suspect]
     Indication: HYPERTENSION
     Route: 048
  2. PRONON [Suspect]
     Route: 048
  3. SUNRYTHM [Suspect]
     Dosage: 50-150 MG/DAY
     Route: 048

REACTIONS (2)
  - BRADYCARDIA [None]
  - LOSS OF CONSCIOUSNESS [None]
